FAERS Safety Report 19806239 (Version 3)
Quarter: 2021Q4

REPORT INFORMATION
  Report Type: Spontaneous
  Country: US (occurrence: None)
  Receive Date: 20210908
  Receipt Date: 20211103
  Transmission Date: 20220303
  Serious: Yes (Other)
  Sender: FDA-Public Use
  Company Number: US-EISAI MEDICAL RESEARCH-EC-2021-098973

PATIENT
  Age: 73 Year
  Sex: Male

DRUGS (2)
  1. FYCOMPA [Suspect]
     Active Substance: PERAMPANEL
     Indication: Partial seizures
     Route: 048
     Dates: end: 20210802
  2. FYCOMPA [Suspect]
     Active Substance: PERAMPANEL
     Route: 048
     Dates: start: 20210803, end: 202108

REACTIONS (4)
  - Homicidal ideation [Recovering/Resolving]
  - Aggression [Recovering/Resolving]
  - Confusional state [Unknown]
  - Personality change [Unknown]

NARRATIVE: CASE EVENT DATE: 20210801
